FAERS Safety Report 9563611 (Version 1)
Quarter: 2013Q3

REPORT INFORMATION
  Report Type: Spontaneous
  Country: IN (occurrence: None)
  Receive Date: 20130920
  Receipt Date: 20130920
  Transmission Date: 20140515
  Serious: Yes (Hospitalization)
  Sender: FDA-Public Use
  Company Number: 151276KS

PATIENT
  Age: 12 Year
  Sex: Male

DRUGS (1)
  1. ETOPOSIDE [Suspect]
     Indication: ACUTE MYELOID LEUKAEMIA
     Dosage: UNKNOWN, UNKNOWN

REACTIONS (3)
  - Rash maculo-papular [None]
  - Neutropenic colitis [None]
  - Hypokalaemia [None]
